FAERS Safety Report 21986676 (Version 1)
Quarter: 2023Q1

REPORT INFORMATION
  Report Type: Spontaneous
  Country: US (occurrence: US)
  Receive Date: 20230213
  Receipt Date: 20230213
  Transmission Date: 20230417
  Serious: No
  Sender: FDA-Public Use
  Company Number: US-Emergent Biosolutions-22000353

PATIENT
  Sex: Female

DRUGS (1)
  1. NARCAN [Suspect]
     Active Substance: NALOXONE HYDROCHLORIDE
     Indication: Product used for unknown indication
     Dosage: 4 MILLIGRAM, UNK
     Route: 045
     Dates: start: 202212, end: 202212

REACTIONS (7)
  - Memory impairment [Recovering/Resolving]
  - Hypersomnia [Unknown]
  - Head banging [Unknown]
  - Ear pain [Unknown]
  - Anxiety [Unknown]
  - Tachycardia [Unknown]
  - Diarrhoea [Unknown]

NARRATIVE: CASE EVENT DATE: 20221201
